FAERS Safety Report 16795465 (Version 1)
Quarter: 2019Q3

REPORT INFORMATION
  Report Type: Spontaneous
  Country: BR (occurrence: BR)
  Receive Date: 20190911
  Receipt Date: 20190911
  Transmission Date: 20191005
  Serious: Yes (Hospitalization)
  Sender: FDA-Public Use
  Company Number: BR-ASTRAZENECA-2019SF26584

PATIENT
  Sex: Female

DRUGS (4)
  1. RAZAPINE [Concomitant]
     Indication: GENERALISED ANXIETY DISORDER
     Dosage: 45.0MG UNKNOWN
     Route: 048
  2. QUETIAPINE. [Suspect]
     Active Substance: QUETIAPINE
     Indication: GENERALISED ANXIETY DISORDER
     Route: 048
  3. ANAFRIL [Concomitant]
     Indication: GENERALISED ANXIETY DISORDER
     Dosage: 75.0MG UNKNOWN
     Route: 048
  4. FRONTAL [Concomitant]
     Active Substance: ALPRAZOLAM
     Indication: GENERALISED ANXIETY DISORDER
     Dosage: 1.5MG UNKNOWN
     Route: 048

REACTIONS (1)
  - Lymphoma [Unknown]

NARRATIVE: CASE EVENT DATE: 201812
